FAERS Safety Report 12543903 (Version 1)
Quarter: 2016Q3

REPORT INFORMATION
  Report Type: Spontaneous
  Country: CA (occurrence: CA)
  Receive Date: 20160711
  Receipt Date: 20160711
  Transmission Date: 20161109
  Serious: Yes (Hospitalization)
  Sender: FDA-Public Use
  Company Number: CA-BAUSCH-BL-2016-016215

PATIENT
  Age: 80 Year
  Sex: Female

DRUGS (1)
  1. JUBLIA [Suspect]
     Active Substance: EFINACONAZOLE
     Indication: ONYCHOMYCOSIS
     Route: 061

REACTIONS (4)
  - Product packaging confusion [Unknown]
  - Drug administered at inappropriate site [Unknown]
  - Intraocular pressure increased [Unknown]
  - Conjunctivitis [Unknown]
